FAERS Safety Report 4352238-X (Version None)
Quarter: 2004Q2

REPORT INFORMATION
  Report Type: 
  Country: None (occurrence: None)
  Receive Date: 20040428
  Receipt Date: 20040408
  Transmission Date: 20050107
  Serious: Yes (Death, Life-Threatening, Hospitalization)
  Sender: FDA-Public Use
  Company Number: US_020685141

PATIENT
  Age: 55 Year
  Sex: Male
  Weight: 49 kg

DRUGS (6)
  1. GEMZAR [Suspect]
     Indication: PANCREATIC CARCINOMA
     Dosage: 1500 MG/WEEK
     Dates: start: 20020508, end: 20020515
  2. SEROTONE (AZASETRON HYDROCHLORIDE) [Concomitant]
  3. FAMOTIDINE [Concomitant]
  4. VOLTAREN [Concomitant]
  5. KADIAN [Concomitant]
  6. MORPHINE HYDROCHLORIDE [Concomitant]

REACTIONS (10)
  - BLOOD PRESSURE DECREASED [None]
  - BONE MARROW DEPRESSION [None]
  - INTERSTITIAL LUNG DISEASE [None]
  - PLATELET COUNT DECREASED [None]
  - PLEURAL EFFUSION [None]
  - PNEUMONIA BACTERIAL [None]
  - PNEUMOTHORAX [None]
  - PULMONARY EMBOLISM [None]
  - RESPIRATORY FAILURE [None]
  - WHITE BLOOD CELL COUNT INCREASED [None]
